FAERS Safety Report 10336914 (Version 1)
Quarter: 2014Q3

REPORT INFORMATION
  Report Type: Spontaneous
  Country: FR (occurrence: FR)
  Receive Date: 20140723
  Receipt Date: 20140723
  Transmission Date: 20150326
  Serious: Yes (Death, Hospitalization)
  Sender: FDA-Public Use
  Company Number: FR-BRISTOL-MYERS SQUIBB COMPANY-21234000

PATIENT
  Age: 71 Year
  Sex: Male

DRUGS (6)
  1. MITOXANTRONE [Suspect]
     Active Substance: MITOXANTRONE HYDROCHLORIDE
     Route: 065
     Dates: start: 1994
  2. IDARUBICIN [Suspect]
     Active Substance: IDARUBICIN
     Route: 042
     Dates: start: 199210
  3. AMSACRINE [Suspect]
     Active Substance: AMSACRINE
     Route: 042
     Dates: start: 1994
  4. BICNU [Suspect]
     Active Substance: CARMUSTINE
     Route: 042
     Dates: start: 1994
  5. ETOPOSIDE. [Suspect]
     Active Substance: ETOPOSIDE
     Route: 065
     Dates: start: 199210
  6. ARACYTINE [Suspect]
     Active Substance: CYTARABINE
     Route: 042
     Dates: start: 199210

REACTIONS (2)
  - Oxygen saturation decreased [None]
  - Myelodysplastic syndrome [Fatal]

NARRATIVE: CASE EVENT DATE: 201304
